FAERS Safety Report 7075568-X (Version None)
Quarter: 2010Q4

REPORT INFORMATION
  Report Type: 
  Country: None (occurrence: None)
  Receive Date: 20101030
  Receipt Date: 20100929
  Transmission Date: 20110411
  Serious: No
  Sender: FDA-Public Use
  Company Number: US-WYE-H17922610

PATIENT
  Sex: Female
  Weight: 49.94 kg

DRUGS (2)
  1. PRISTIQ [Suspect]
     Indication: DEPRESSION
     Dosage: UNKNOWN STRENGTH, ONCE A DAY
     Dates: start: 20090901
  2. PRISTIQ [Suspect]
     Dosage: UNKNOWN STRENGTH, EVERY OTHER DAY

REACTIONS (3)
  - DRUG DOSE OMISSION [None]
  - INTENTIONAL DRUG MISUSE [None]
  - SOMNOLENCE [None]
